FAERS Safety Report 9026842 (Version 1)
Quarter: 2013Q1

REPORT INFORMATION
  Report Type: Spontaneous
  Country: DK (occurrence: None)
  Receive Date: 20130109
  Receipt Date: 20130109
  Transmission Date: 20140127
  Serious: Yes (Hospitalization)
  Sender: FDA-Public Use
  Company Number: DSA_61788_2013

PATIENT
  Age: 64 Year
  Sex: Male

DRUGS (6)
  1. 5-FU [Suspect]
     Indication: COLORECTAL CANCER METASTATIC
     Route: 040
     Dates: start: 20121130, end: 20121130
  2. AFLIBERCEPT (AFLIBERCEPT) SOLUTION FOR INJECTION [Suspect]
     Indication: COLORECTAL CANCER METASTATIC
     Dates: start: 20121130, end: 20121130
  3. IRINOTECAN (IRINOTECAN) [Suspect]
     Indication: COLORECTAL CANCER METASTATIC
     Dates: start: 20121130, end: 20121130
  4. LEUCOVORIN [Suspect]
     Indication: COLORECTAL CANCER METASTATIC
     Dates: start: 20121130, end: 20121130
  5. LEVOTHYROXINE SODIUM [Concomitant]
  6. MAXALT [Concomitant]

REACTIONS (1)
  - Hypertension [None]
